FAERS Safety Report 4286776-5 (Version None)
Quarter: 2004Q1

REPORT INFORMATION
  Report Type: 
  Country: None (occurrence: None)
  Receive Date: 20040206
  Receipt Date: 20030114
  Transmission Date: 20041129
  Serious: Yes (Death)
  Sender: FDA-Public Use
  Company Number: US-ROCHE-329397

PATIENT
  Age: 15 Year
  Sex: Male
  Weight: 59 kg

DRUGS (1)
  1. ACCUTANE [Suspect]
     Dosage: QD/BID
     Route: 048
     Dates: start: 19990916, end: 20000126

REACTIONS (2)
  - ACNE CYSTIC [None]
  - COMPLETED SUICIDE [None]
